FAERS Safety Report 26055969 (Version 1)
Quarter: 2025Q4

REPORT INFORMATION
  Report Type: Spontaneous
  Country: JP (occurrence: JP)
  Receive Date: 20251118
  Receipt Date: 20251118
  Transmission Date: 20260117
  Serious: Yes (Other)
  Sender: MERCK SHARP & DOHME LLC
  Company Number: JP-009507513-2349931

PATIENT
  Age: 64 Year
  Sex: Male

DRUGS (2)
  1. PEMBROLIZUMAB [Suspect]
     Active Substance: PEMBROLIZUMAB
     Indication: Metastases to lung
     Route: 065
  2. LENVIMA [Suspect]
     Active Substance: LENVATINIB
     Indication: Clear cell renal cell carcinoma
     Dosage: ADMINISTRATION PERIOD (19 MONTHS)?TREATMENT PERIOD (19 MONTHS)
     Route: 065

REACTIONS (7)
  - Malignant neoplasm progression [Unknown]
  - Infective aneurysm [Unknown]
  - Haemorrhage [Unknown]
  - Gastrointestinal perforation [Unknown]
  - Proteinuria [Unknown]
  - Therapy partial responder [Unknown]
  - Renal disorder [Unknown]
